FAERS Safety Report 17584220 (Version 3)
Quarter: 2020Q2

REPORT INFORMATION
  Report Type: Spontaneous
  Country: TH (occurrence: TH)
  Receive Date: 20200326
  Receipt Date: 20200410
  Transmission Date: 20200713
  Serious: Yes (Other)
  Sender: FDA-Public Use
  Company Number: NVSC2020TH076087

PATIENT
  Age: 57 Year
  Sex: Male

DRUGS (1)
  1. AFINITOR [Suspect]
     Active Substance: EVEROLIMUS
     Indication: PRODUCT USED FOR UNKNOWN INDICATION
     Dosage: 10 MG, QD
     Route: 065

REACTIONS (7)
  - Abdominal discomfort [Recovering/Resolving]
  - Mass [Unknown]
  - Weight increased [Unknown]
  - Large intestinal ulcer [Unknown]
  - Soft tissue necrosis [Unknown]
  - Neuroendocrine tumour [Unknown]
  - Haematochezia [Unknown]
